FAERS Safety Report 16306595 (Version 2)
Quarter: 2020Q4

REPORT INFORMATION
  Report Type: Spontaneous
  Country: US (occurrence: US)
  Receive Date: 20190513
  Receipt Date: 20201218
  Transmission Date: 20210113
  Serious: Yes (Death, Hospitalization, Other)
  Sender: FDA-Public Use
  Company Number: US-ASTRAZENECA-2019SE65271

PATIENT
  Age: 40 Year
  Sex: Male

DRUGS (85)
  1. NEXIUM [Suspect]
     Active Substance: ESOMEPRAZOLE MAGNESIUM
     Indication: GASTROOESOPHAGEAL REFLUX DISEASE
     Route: 048
     Dates: start: 200403, end: 201704
  2. TEMAZEPAM. [Concomitant]
     Active Substance: TEMAZEPAM
     Indication: INSOMNIA
  3. CIMETIDINE [Concomitant]
     Active Substance: CIMETIDINE
  4. MAGNESIUM HYDROXIDE. [Concomitant]
     Active Substance: MAGNESIUM HYDROXIDE
  5. SERTRALINE [Concomitant]
     Active Substance: SERTRALINE HYDROCHLORIDE
  6. ONDANSETRON [Concomitant]
     Active Substance: ONDANSETRON
  7. NITROFURANTOIN. [Concomitant]
     Active Substance: NITROFURANTOIN
  8. REQUIP [Concomitant]
     Active Substance: ROPINIROLE HYDROCHLORIDE
  9. VITAMIN B COMPLEX [Concomitant]
     Active Substance: CYANOCOBALAMIN\DEXPANTHENOL\NIACINAMIDE\PYRIDOXINE HYDROCHLORIDE\RIBOFLAVIN 5^-PHOSPHATE SODIUM\THIAMINE HYDROCHLORIDE\VITAMIN B COMPLEX
  10. TANDEM [Concomitant]
     Active Substance: FERROUS ASPARTO GLYCINATE\FERROUS FUMARATE
  11. PROPRANOLOL [Concomitant]
     Active Substance: PROPRANOLOL HYDROCHLORIDE
  12. CIPRO [Concomitant]
     Active Substance: CIPROFLOXACIN HYDROCHLORIDE
  13. PREVACID 24 HR [Suspect]
     Active Substance: LANSOPRAZOLE
     Route: 065
     Dates: start: 200403, end: 201704
  14. CALCITRIOL. [Concomitant]
     Active Substance: CALCITRIOL
     Indication: MULTI-VITAMIN DEFICIENCY
  15. GABAPENTIN. [Concomitant]
     Active Substance: GABAPENTIN
     Indication: NEURALGIA
  16. OXYCODONE [Concomitant]
     Active Substance: OXYCODONE
     Indication: ANALGESIC THERAPY
  17. ZANTAC [Concomitant]
     Active Substance: RANITIDINE HYDROCHLORIDE
  18. SUCRALFATE. [Concomitant]
     Active Substance: SUCRALFATE
  19. SULFAMETH/TMP [Concomitant]
     Active Substance: SULFAMETHOXAZOLE\TRIMETHOPRIM
  20. ALLOPURINOL. [Concomitant]
     Active Substance: ALLOPURINOL
  21. GLUCOSE [Concomitant]
     Active Substance: DEXTROSE
  22. RAPAFLO [Concomitant]
     Active Substance: SILODOSIN
  23. IMITREX [Concomitant]
     Active Substance: SUMATRIPTAN SUCCINATE
  24. DOCQLACE [Concomitant]
     Active Substance: DOCUSATE SODIUM
  25. PRILOSEC [Suspect]
     Active Substance: OMEPRAZOLE MAGNESIUM
     Indication: GASTROOESOPHAGEAL REFLUX DISEASE
     Route: 048
     Dates: start: 2013
  26. IBUPROFEN. [Concomitant]
     Active Substance: IBUPROFEN
     Indication: ANALGESIC THERAPY
  27. AMLODIPINE BESYLATE. [Concomitant]
     Active Substance: AMLODIPINE BESYLATE
  28. MECLIZINE [Concomitant]
     Active Substance: MECLIZINE HYDROCHLORIDE
  29. NORVASC [Concomitant]
     Active Substance: AMLODIPINE BESYLATE
  30. FERAHEME [Concomitant]
     Active Substance: FERUMOXYTOL NON-STOICHIOMETRIC MAGNETITE
  31. LABETALOL [Concomitant]
     Active Substance: LABETALOL\LABETALOL HYDROCHLORIDE
  32. ZOMIG [Concomitant]
     Active Substance: ZOLMITRIPTAN
  33. PRILOSEC [Suspect]
     Active Substance: OMEPRAZOLE MAGNESIUM
     Indication: GASTROOESOPHAGEAL REFLUX DISEASE
     Dosage: GENERIC
     Route: 065
     Dates: start: 20090731, end: 20100122
  34. PRILOSEC [Suspect]
     Active Substance: OMEPRAZOLE MAGNESIUM
     Indication: GASTROOESOPHAGEAL REFLUX DISEASE
     Dosage: GENERIC
     Route: 065
     Dates: start: 20100628, end: 20120210
  35. PRILOSEC [Suspect]
     Active Substance: OMEPRAZOLE MAGNESIUM
     Indication: GASTROOESOPHAGEAL REFLUX DISEASE
     Dosage: GENERIC
     Route: 065
     Dates: start: 20150219, end: 20150519
  36. PRILOSEC OTC [Suspect]
     Active Substance: OMEPRAZOLE MAGNESIUM
     Route: 048
     Dates: start: 200403, end: 201704
  37. VITAMIN D [Concomitant]
     Active Substance: VITAMIN D NOS
     Indication: VITAMIN D DEFICIENCY
  38. FAMOTIDINE. [Concomitant]
     Active Substance: FAMOTIDINE
  39. DIAZEPAM. [Concomitant]
     Active Substance: DIAZEPAM
  40. CILOSTAZOL. [Concomitant]
     Active Substance: CILOSTAZOL
  41. AVANDARYL [Concomitant]
     Active Substance: GLIMEPIRIDE\ROSIGLITAZONE MALEATE
  42. NEXIUM [Suspect]
     Active Substance: ESOMEPRAZOLE MAGNESIUM
     Indication: GASTROOESOPHAGEAL REFLUX DISEASE
     Route: 048
     Dates: start: 20130917, end: 2019
  43. PRILOSEC [Suspect]
     Active Substance: OMEPRAZOLE MAGNESIUM
     Indication: GASTROOESOPHAGEAL REFLUX DISEASE
     Dosage: GENERIC
     Route: 065
     Dates: start: 20130516, end: 20141016
  44. CLOTRIMAZOLE AND BETAMETHASONE DIPROPIONATE [Concomitant]
     Active Substance: BETAMETHASONE\BETAMETHASONE DIPROPIONATE\CLOTRIMAZOLE
     Indication: SKIN IRRITATION
  45. DIPHENOXYLATE/ATROPINE [Concomitant]
     Active Substance: ATROPINE\DIPHENOXYLATE
  46. FENOFIBRATE. [Concomitant]
     Active Substance: FENOFIBRATE
  47. PROAIR HFA [Concomitant]
     Active Substance: ALBUTEROL SULFATE
  48. MELATONIN [Concomitant]
     Active Substance: MELATONIN
  49. FOLTRIN [Concomitant]
  50. NABUMETONE. [Concomitant]
     Active Substance: NABUMETONE
  51. AMARYL [Concomitant]
     Active Substance: GLIMEPIRIDE
  52. BACLOFEN. [Concomitant]
     Active Substance: BACLOFEN
     Indication: MYALGIA
  53. OXYCODONE [Concomitant]
     Active Substance: OXYCODONE
  54. ERYTHROCIN [Concomitant]
     Active Substance: ERYTHROMYCIN LACTOBIONATE
  55. BISOPROLOL FUMARATE. [Concomitant]
     Active Substance: BISOPROLOL FUMARATE
  56. DILAUDID [Concomitant]
     Active Substance: HYDROMORPHONE HYDROCHLORIDE
  57. TETRACYCLINE [Concomitant]
     Active Substance: TETRACYCLINE
  58. VISTARIL [Concomitant]
     Active Substance: HYDROXYZINE PAMOATE
  59. ANTIVERT [Concomitant]
     Active Substance: MECLIZINE HYDROCHLORIDE
  60. LAMISIL [Concomitant]
     Active Substance: TERBINAFINE HYDROCHLORIDE
  61. NEOMYCIN. [Concomitant]
     Active Substance: NEOMYCIN
  62. HYOSCYAMINE. [Concomitant]
     Active Substance: HYOSCYAMINE
  63. PREVACID [Suspect]
     Active Substance: LANSOPRAZOLE
     Indication: GASTROOESOPHAGEAL REFLUX DISEASE
     Route: 065
     Dates: start: 200403, end: 201704
  64. PROTONIX [Suspect]
     Active Substance: PANTOPRAZOLE SODIUM
     Indication: GASTROOESOPHAGEAL REFLUX DISEASE
     Route: 065
     Dates: start: 200403, end: 201704
  65. PROTONIX [Suspect]
     Active Substance: PANTOPRAZOLE SODIUM
     Indication: GASTROOESOPHAGEAL REFLUX DISEASE
     Route: 065
     Dates: start: 2004, end: 2019
  66. CALCIUM CARBONATE. [Concomitant]
     Active Substance: CALCIUM CARBONATE
  67. KETOCONAZOLE. [Concomitant]
     Active Substance: KETOCONAZOLE
  68. ATORVASTATIN [Concomitant]
     Active Substance: ATORVASTATIN
  69. NORVASC [Concomitant]
     Active Substance: AMLODIPINE BESYLATE
  70. MERREM [Concomitant]
     Active Substance: MEROPENEM
  71. LIVALO [Concomitant]
     Active Substance: PITAVASTATIN CALCIUM
  72. PROPOXYPHENE. [Concomitant]
     Active Substance: PROPOXYPHENE
  73. NEXIUM 24HR [Suspect]
     Active Substance: ESOMEPRAZOLE MAGNESIUM
     Route: 048
     Dates: start: 200403, end: 201704
  74. PREVACID [Suspect]
     Active Substance: LANSOPRAZOLE
     Indication: GASTROOESOPHAGEAL REFLUX DISEASE
     Route: 065
     Dates: start: 2004
  75. LISINOPRIL. [Concomitant]
     Active Substance: LISINOPRIL
     Indication: HYPERTENSION
  76. SUCRALFATE. [Concomitant]
     Active Substance: SUCRALFATE
     Indication: ANTACID THERAPY
  77. LEVOTHYROXINE. [Concomitant]
     Active Substance: LEVOTHYROXINE
  78. ISOSORBIDE DINITRATE. [Concomitant]
     Active Substance: ISOSORBIDE DINITRATE
  79. HYDROCHLOROTHIAZIDE. [Concomitant]
     Active Substance: HYDROCHLOROTHIAZIDE
  80. CETIRIZINE [Concomitant]
     Active Substance: CETIRIZINE HYDROCHLORIDE
  81. METOPROLOL. [Concomitant]
     Active Substance: METOPROLOL
  82. VENTOLIN HFA [Concomitant]
     Active Substance: ALBUTEROL SULFATE
  83. PROCHLORPERAZINE. [Concomitant]
     Active Substance: PROCHLORPERAZINE
  84. ACTONEL [Concomitant]
     Active Substance: RISEDRONATE SODIUM
  85. HUMULIN NOS [Concomitant]
     Active Substance: INSULIN HUMAN

REACTIONS (5)
  - Renal failure [Unknown]
  - Tubulointerstitial nephritis [Unknown]
  - Renal tubular necrosis [Unknown]
  - Chronic kidney disease [Unknown]
  - Acute kidney injury [Unknown]

NARRATIVE: CASE EVENT DATE: 2013
